FAERS Safety Report 6025000-X (Version None)
Quarter: 2008Q4

REPORT INFORMATION
  Report Type: 
  Country: None (occurrence: None)
  Receive Date: 20081231
  Receipt Date: 20081219
  Transmission Date: 20090506
  Serious: Yes (Hospitalization, Other)
  Sender: FDA-Public Use
  Company Number: FR-ELI_LILLY_AND_COMPANY-FR200812004993

PATIENT
  Sex: Male

DRUGS (5)
  1. ZYPREXA [Suspect]
     Dosage: 10 MG, DAILY (1/D)
     Route: 048
  2. NOZINAN [Concomitant]
  3. ATARAX [Concomitant]
  4. RIVOTRIL [Concomitant]
  5. LEPTICUR [Concomitant]

REACTIONS (7)
  - BODY TEMPERATURE INCREASED [None]
  - DEPRESSION [None]
  - FAECALOMA [None]
  - HOSPITALISATION [None]
  - PSYCHOMOTOR RETARDATION [None]
  - PYREXIA [None]
  - SEPTIC SHOCK [None]
